FAERS Safety Report 10985989 (Version 2)
Quarter: 2015Q2

REPORT INFORMATION
  Report Type: Spontaneous
  Country: US (occurrence: None)
  Receive Date: 20150309
  Receipt Date: 20150504
  Transmission Date: 20150821
  Serious: Yes (Hospitalization)
  Sender: FDA-Public Use
  Company Number: 1713747-2015-99968

PATIENT
  Age: 53 Year
  Sex: Female
  Weight: 115.67 kg

DRUGS (15)
  1. COUMADIN [Concomitant]
     Active Substance: WARFARIN SODIUM
  2. ACETAMINOPHEN. [Concomitant]
     Active Substance: ACETAMINOPHEN
  3. NEPRO-VITE [Concomitant]
  4. RENVELA [Concomitant]
     Active Substance: SEVELAMER CARBONATE
  5. VITAMIN C [Concomitant]
     Active Substance: ASCORBIC ACID
  6. ALLOPURINOL. [Concomitant]
     Active Substance: ALLOPURINOL
  7. LIBERTY CYCLER [Concomitant]
     Active Substance: DEVICE
  8. EPOGEN [Concomitant]
     Active Substance: ERYTHROPOIETIN
  9. LIBERTY CYCLER CASSETTE [Concomitant]
     Active Substance: DEVICE
  10. SIMVASTATIN. [Concomitant]
     Active Substance: SIMVASTATIN
  11. DELFLEX [Suspect]
     Active Substance: CALCIUM CHLORIDE\DEXTROSE MONOHYDRATE\MAGNESIUM CHLORIDE\SODIUM CHLORIDE\SODIUM LACTATE
     Indication: PERITONEAL DIALYSIS
     Route: 033
  12. SENSIPAR [Concomitant]
     Active Substance: CINACALCET HYDROCHLORIDE
  13. PRILOSEC [Concomitant]
     Active Substance: OMEPRAZOLE MAGNESIUM
  14. VITAMIN D3 [Concomitant]
     Active Substance: CHOLECALCIFEROL
  15. FUROSEMIDE. [Concomitant]
     Active Substance: FUROSEMIDE

REACTIONS (2)
  - Sepsis [None]
  - Peritonitis [None]

NARRATIVE: CASE EVENT DATE: 20150216
